FAERS Safety Report 6427909-1 (Version None)
Quarter: 2009Q4

REPORT INFORMATION
  Report Type: 
  Country: None (occurrence: None)
  Receive Date: 20091104
  Receipt Date: 20091104
  Transmission Date: 20100525
  Serious: Yes (Hospitalization)
  Sender: FDA-Public Use
  Company Number: None

PATIENT
  Age: 73 Year
  Sex: Male

DRUGS (2)
  1. PERPHENAZINE [Suspect]
     Indication: PSYCHOTIC DISORDER
     Dosage: 2 MG BID PO
     Route: 048
     Dates: start: 20080626, end: 20081106
  2. DONEPEZIL HCL [Suspect]
     Indication: DEMENTIA
     Dosage: 10 MG EVERY DAY PO
     Route: 048
     Dates: start: 20081020, end: 20081106

REACTIONS (1)
  - ILL-DEFINED DISORDER [None]
